FAERS Safety Report 23878707 (Version 1)
Quarter: 2024Q2

REPORT INFORMATION
  Report Type: Spontaneous
  Country: US (occurrence: None)
  Receive Date: 20240520
  Receipt Date: 20240520
  Transmission Date: 20240716
  Serious: Yes (Hospitalization)
  Sender: FDA-Public Use
  Company Number: None

PATIENT
  Age: 44 Year
  Sex: Female

DRUGS (1)
  1. AMBRISENTAN [Suspect]
     Active Substance: AMBRISENTAN
     Indication: Pulmonary hypertension
     Dosage: 10 MG DAILY ORAL?
     Route: 048

REACTIONS (10)
  - Palpitations [None]
  - Chest pain [None]
  - Lethargy [None]
  - Hypersomnia [None]
  - Systemic lupus erythematosus [None]
  - Dyspnoea [None]
  - Psychiatric symptom [None]
  - Therapy interrupted [None]
  - Product use complaint [None]
  - Vomiting [None]

NARRATIVE: CASE EVENT DATE: 20240418
